FAERS Safety Report 13042593 (Version 1)
Quarter: 2016Q4

REPORT INFORMATION
  Report Type: Spontaneous
  Country: US (occurrence: US)
  Receive Date: 20161219
  Receipt Date: 20161219
  Transmission Date: 20170207
  Serious: No
  Sender: FDA-Public Use
  Company Number: US-009507513-1612USA004754

PATIENT
  Age: 60 Year
  Sex: Female

DRUGS (7)
  1. ALLEGRA [Concomitant]
     Active Substance: FEXOFENADINE HYDROCHLORIDE
  2. NASONEX [Suspect]
     Active Substance: MOMETASONE FUROATE
     Indication: BRONCHITIS
  3. PROTONIX [Concomitant]
     Active Substance: PANTOPRAZOLE SODIUM
  4. NASONEX [Suspect]
     Active Substance: MOMETASONE FUROATE
     Indication: UPPER RESPIRATORY TRACT INFECTION
     Dosage: 2 SPRAYS IN EACH NOSTRIL, TWICE DAILY
     Route: 045
  5. PREDNISONE. [Concomitant]
     Active Substance: PREDNISONE
  6. NORCO [Concomitant]
     Active Substance: ACETAMINOPHEN\HYDROCODONE BITARTRATE
  7. AUGMENTIN [Concomitant]
     Active Substance: AMOXICILLIN\CLAVULANATE POTASSIUM

REACTIONS (3)
  - Productive cough [Recovering/Resolving]
  - Product quality issue [Unknown]
  - Product use issue [Unknown]

NARRATIVE: CASE EVENT DATE: 201610
